FAERS Safety Report 5865836-9 (Version None)
Quarter: 2008Q3

REPORT INFORMATION
  Report Type: 
  Country: None (occurrence: None)
  Receive Date: 20080829
  Receipt Date: 20080821
  Transmission Date: 20090109
  Serious: Yes (Other)
  Sender: FDA-Public Use
  Company Number: US-JNJCH-2008021860

PATIENT
  Age: 84 Year
  Sex: Female

DRUGS (1)
  1. VISINE-A [Suspect]
     Indication: DRUG USE FOR UNKNOWN INDICATION
     Dosage: TEXT:TWO DROPS EACH EYE ONCE
     Route: 047
     Dates: start: 20080821, end: 20080821

REACTIONS (1)
  - APPLICATION SITE BURN [None]
